FAERS Safety Report 11060347 (Version 14)
Quarter: 2019Q3

REPORT INFORMATION
  Report Type: Report from Study
  Country: IT (occurrence: IT)
  Receive Date: 20150423
  Receipt Date: 20190930
  Transmission Date: 20191004
  Serious: Yes (Other)
  Sender: FDA-Public Use
  Company Number: PHHY2014IT060930

PATIENT
  Age: 43 Year
  Sex: Male

DRUGS (1)
  1. GILENYA [Suspect]
     Active Substance: FINGOLIMOD HYDROCHLORIDE
     Indication: MULTIPLE SCLEROSIS
     Dosage: UNK, QD
     Route: 048
     Dates: start: 20130819, end: 20140529

REACTIONS (18)
  - Aspartate aminotransferase increased [Unknown]
  - Constipation [Recovered/Resolved]
  - Lipoma [Unknown]
  - Influenza [Recovered/Resolved]
  - Influenza like illness [Recovered/Resolved]
  - Central nervous system lesion [Recovered/Resolved]
  - Renal colic [Recovered/Resolved]
  - Blood thyroid stimulating hormone decreased [Recovered/Resolved]
  - Blood bilirubin increased [Recovered/Resolved]
  - Alanine aminotransferase decreased [Unknown]
  - Influenza like illness [Recovered/Resolved]
  - Gastroenteritis [Recovered/Resolved]
  - Monocyte count increased [Unknown]
  - Back pain [Recovered/Resolved]
  - Thyroiditis acute [Unknown]
  - Blood bilirubin increased [Unknown]
  - Nephrolithiasis [Recovered/Resolved]
  - Blood thyroid stimulating hormone decreased [Recovered/Resolved]

NARRATIVE: CASE EVENT DATE: 20131018
